FAERS Safety Report 7154017-7 (Version None)
Quarter: 2010Q4

REPORT INFORMATION
  Report Type: 
  Country: None (occurrence: None)
  Receive Date: 20101213
  Receipt Date: 20101203
  Transmission Date: 20110411
  Serious: Yes (Other)
  Sender: FDA-Public Use
  Company Number: PHHO2010US18667

PATIENT
  Sex: Male

DRUGS (1)
  1. STI571/CGP57148B T35717+CAPS [Suspect]
     Indication: CHRONIC MYELOID LEUKAEMIA
     Dosage: 400 MG, BID
     Route: 048
     Dates: start: 20010726

REACTIONS (1)
  - BLADDER CANCER [None]
